FAERS Safety Report 16649771 (Version 9)
Quarter: 2020Q1

REPORT INFORMATION
  Report Type: Report from Study
  Country: None (occurrence: FR)
  Receive Date: 20190730
  Receipt Date: 20200129
  Transmission Date: 20200409
  Serious: Yes (Hospitalization, Other)
  Sender: FDA-Public Use
  Company Number: FR-ABBVIE-19S-056-2827497-00

PATIENT
  Age: 73 Year
  Sex: Male
  Weight: 63 kg

DRUGS (2)
  1. DUODOPA [Suspect]
     Active Substance: CARBIDOPA\LEVODOPA
     Dosage: CD: 4.7 ML/H, 2 ML EXTRADOSES THREE TIMES A DAY
     Route: 050
     Dates: start: 201907
  2. DUODOPA [Suspect]
     Active Substance: CARBIDOPA\LEVODOPA
     Indication: PARKINSON^S DISEASE
     Dosage: CD: 4.5 ML/H
     Route: 050
     Dates: start: 20190523, end: 2019

REACTIONS (22)
  - Malaise [Not Recovered/Not Resolved]
  - Anal incontinence [Unknown]
  - Hyperthermia [Not Recovered/Not Resolved]
  - Back pain [Unknown]
  - Skin wound [Unknown]
  - Stoma site reaction [Unknown]
  - Drug ineffective [Unknown]
  - Fall [Recovered/Resolved]
  - Dyskinesia [Not Recovered/Not Resolved]
  - Viral infection [Not Recovered/Not Resolved]
  - Skin wound [Unknown]
  - Fall [Unknown]
  - Stoma site pain [Unknown]
  - Decreased appetite [Unknown]
  - Device breakage [Unknown]
  - Weight decreased [Unknown]
  - Faeces hard [Unknown]
  - Gait disturbance [Not Recovered/Not Resolved]
  - Diarrhoea [Unknown]
  - Constipation [Unknown]
  - Musculoskeletal pain [Unknown]
  - Stoma site extravasation [Recovered/Resolved]

NARRATIVE: CASE EVENT DATE: 2019
